FAERS Safety Report 10854578 (Version 1)
Quarter: 2015Q1

REPORT INFORMATION
  Report Type: Spontaneous
  Country: DE (occurrence: None)
  Receive Date: 20150218
  Receipt Date: 20150218
  Transmission Date: 20150721
  Serious: Yes (Life-Threatening, Hospitalization)
  Sender: FDA-Public Use
  Company Number: NSR_01831_2015

PATIENT
  Age: 21 Year
  Sex: Male

DRUGS (1)
  1. BACLOFEN (BACLOFEN) [Suspect]
     Active Substance: BACLOFEN
     Indication: MUSCLE SPASTICITY
     Dosage: BOLUS PORT OF PUMP INSTEAD OF INJECTING OVER RESERVOIR PORT INTRATHECAL)
     Route: 037

REACTIONS (10)
  - Pruritus [None]
  - Hypotonia [None]
  - Bradycardia [None]
  - Respiratory failure [None]
  - Paraesthesia [None]
  - Coma [None]
  - Toxicity to various agents [None]
  - Inappropriate affect [None]
  - Seizure [None]
  - Accidental overdose [None]
